FAERS Safety Report 8851272 (Version 2)
Quarter: 2012Q4

REPORT INFORMATION
  Report Type: 
  Country: JP (occurrence: JP)
  Receive Date: 20121019
  Receipt Date: 20121126
  Transmission Date: 20130627
  Serious: Yes (Hospitalization)
  Sender: FDA-Public Use
  Company Number: PHHY2012JP090316

PATIENT
  Age: 58 Year
  Sex: Male

DRUGS (5)
  1. ISONIAZID [Suspect]
     Indication: PULMONARY TUBERCULOSIS
     Dosage: 300 mg
  2. RIFAMPICIN [Concomitant]
     Indication: PULMONARY TUBERCULOSIS
     Dosage: 450 mg
  3. ETHAMBUTOL [Concomitant]
     Indication: PULMONARY TUBERCULOSIS
     Dosage: 750 mg
  4. PYRAZINAMIDE [Concomitant]
     Indication: PULMONARY TUBERCULOSIS
     Dosage: 1 g
  5. STREPTOMYCIN [Concomitant]
     Indication: PULMONARY TUBERCULOSIS
     Dosage: 750 mg

REACTIONS (3)
  - Autoimmune thrombocytopenia [Recovered/Resolved]
  - Haemorrhage subcutaneous [Recovered/Resolved]
  - Liver injury [Recovered/Resolved]
